FAERS Safety Report 4590661-9 (Version None)
Quarter: 2005Q1

REPORT INFORMATION
  Report Type: 
  Country: None (occurrence: None)
  Receive Date: 20050224
  Receipt Date: 20050214
  Transmission Date: 20050727
  Serious: Yes (Hospitalization)
  Sender: FDA-Public Use
  Company Number: US-AMGEN-US114467

PATIENT
  Sex: Female
  Weight: 47.5 kg

DRUGS (6)
  1. SENSIPAR [Suspect]
     Indication: HYPERPARATHYROIDISM SECONDARY
     Route: 048
     Dates: start: 20041221
  2. PROTONIX [Concomitant]
  3. RENAGEL [Concomitant]
  4. ASPIRIN [Concomitant]
  5. SODIUM BICARBONATE IN PLASTIC CONTAINER [Concomitant]
  6. PHOSLO [Concomitant]

REACTIONS (7)
  - APNOEA [None]
  - COLD SWEAT [None]
  - CONVULSION [None]
  - DIZZINESS [None]
  - HYPERCAPNIA [None]
  - SYNCOPE [None]
  - TACHYCARDIA [None]
